FAERS Safety Report 25647686 (Version 1)
Quarter: 2025Q3

REPORT INFORMATION
  Report Type: Spontaneous
  Country: GB (occurrence: GB)
  Receive Date: 20250806
  Receipt Date: 20250806
  Transmission Date: 20251020
  Serious: Yes (Life-Threatening, Hospitalization)
  Sender: ROCHE
  Company Number: None

PATIENT
  Sex: Female

DRUGS (5)
  1. ATEZOLIZUMAB [Suspect]
     Active Substance: ATEZOLIZUMAB
     Indication: Colon cancer
     Route: 042
     Dates: start: 20250701
  2. CAPECITABINE [Concomitant]
     Active Substance: CAPECITABINE
     Route: 050
  3. OXALIPLATIN [Concomitant]
     Active Substance: OXALIPLATIN
     Route: 050
  4. LOPERAMIDE [Concomitant]
     Active Substance: LOPERAMIDE
     Route: 050
  5. METOCLOPRAMIDE [Concomitant]
     Active Substance: METOCLOPRAMIDE
     Route: 050

REACTIONS (10)
  - Fatigue [Unknown]
  - Nausea [Unknown]
  - Dizziness [Unknown]
  - Asthenia [Unknown]
  - Hypotension [Not Recovered/Not Resolved]
  - Dyspnoea [Unknown]
  - Depressed level of consciousness [Not Recovered/Not Resolved]
  - Sepsis [Unknown]
  - Multiple organ dysfunction syndrome [Not Recovered/Not Resolved]
  - Shock [Not Recovered/Not Resolved]

NARRATIVE: CASE EVENT DATE: 20250801
